FAERS Safety Report 5182670-6 (Version None)
Quarter: 2006Q4

REPORT INFORMATION
  Report Type: 
  Country: None (occurrence: None)
  Receive Date: 20061212
  Receipt Date: 20061127
  Transmission Date: 20070319
  Serious: Yes (Hospitalization)
  Sender: FDA-Public Use
  Company Number: 2006S1011071

PATIENT
  Age: 19 Year
  Sex: Male

DRUGS (5)
  1. EXTENDED PHENYTOIN SODIUM [Suspect]
     Indication: CONVULSION
     Dosage: 300 MG; Q24; PO
     Route: 048
     Dates: start: 20051011, end: 20060725
  2. EXTENDED PHENYTOIN SODIUM [Suspect]
  3. TEMOZOLOMIDE (CON.) [Concomitant]
  4. ONDANSETRON (CON.) [Concomitant]
  5. PROCHLORPERAZINE EDISYLATE) (CON.) [Concomitant]

REACTIONS (1)
  - CONVULSION [None]
